FAERS Safety Report 13360383 (Version 1)
Quarter: 2017Q1

REPORT INFORMATION
  Report Type: Spontaneous
  Country: DE (occurrence: DE)
  Receive Date: 20170322
  Receipt Date: 20170322
  Transmission Date: 20170429
  Serious: Yes (Disabling, Other)
  Sender: FDA-Public Use
  Company Number: DE-BAYER-2017-049981

PATIENT
  Age: 37 Year
  Sex: Female
  Weight: 80 kg

DRUGS (2)
  1. AVALOX [Suspect]
     Active Substance: MOXIFLOXACIN HYDROCHLORIDE
     Indication: PNEUMONITIS
     Dosage: 400 MG, BID
     Route: 048
     Dates: start: 20131218
  2. AVALOX [Suspect]
     Active Substance: MOXIFLOXACIN HYDROCHLORIDE
     Indication: PNEUMONITIS
     Dosage: UNK
     Route: 042
     Dates: start: 20131217

REACTIONS (31)
  - Neuropathy peripheral [Recovered/Resolved with Sequelae]
  - Respiratory distress [Recovered/Resolved]
  - Dizziness [Recovered/Resolved]
  - Anxiety [Recovered/Resolved with Sequelae]
  - Hallucination [Recovered/Resolved with Sequelae]
  - Visual field defect [Not Recovered/Not Resolved]
  - Immune system disorder [Not Recovered/Not Resolved]
  - Migraine [Recovered/Resolved with Sequelae]
  - Hepatic enzyme increased [Recovered/Resolved]
  - Diplopia [Not Recovered/Not Resolved]
  - Arthropathy [Unknown]
  - Skin mass [Unknown]
  - Aphasia [Recovered/Resolved]
  - Vitreous floaters [Recovered/Resolved]
  - Night blindness [Not Recovered/Not Resolved]
  - Photopsia [Not Recovered/Not Resolved]
  - Vulvovaginal candidiasis [Recovered/Resolved with Sequelae]
  - Decreased appetite [Recovered/Resolved]
  - Vision blurred [Not Recovered/Not Resolved]
  - Photokeratitis [Not Recovered/Not Resolved]
  - Alopecia [Not Recovered/Not Resolved]
  - Osteoarthritis [Recovered/Resolved with Sequelae]
  - Lymphatic disorder [Recovered/Resolved with Sequelae]
  - Visual impairment [Recovered/Resolved]
  - Dyspepsia [Not Recovered/Not Resolved]
  - Thyroid mass [Recovered/Resolved with Sequelae]
  - Headache [Recovered/Resolved]
  - Arrhythmia [Not Recovered/Not Resolved]
  - Syncope [Recovered/Resolved]
  - Asthenia [Recovered/Resolved]
  - Anxiety disorder [Recovered/Resolved with Sequelae]

NARRATIVE: CASE EVENT DATE: 20131218
